FAERS Safety Report 18828273 (Version 1)
Quarter: 2021Q1

REPORT INFORMATION
  Report Type: Spontaneous
  Country: US (occurrence: US)
  Receive Date: 20210201
  Receipt Date: 20210201
  Transmission Date: 20210419
  Serious: No
  Sender: FDA-Public Use
  Company Number: US-ABBVIE-20K-163-3509599-00

PATIENT
  Age: 16 Year
  Sex: Male

DRUGS (2)
  1. HUMIRA [Suspect]
     Active Substance: ADALIMUMAB
     Dosage: DURATION? EVERY WEEK
     Route: 058
     Dates: start: 20200706
  2. HUMIRA [Suspect]
     Active Substance: ADALIMUMAB
     Indication: JUVENILE IDIOPATHIC ARTHRITIS
     Dosage: DURATION?EVERY OTHER WEEK
     Route: 058
     Dates: start: 202001, end: 202007

REACTIONS (2)
  - Arthralgia [Recovering/Resolving]
  - Therapeutic response shortened [Unknown]

NARRATIVE: CASE EVENT DATE: 202007
